FAERS Safety Report 24566862 (Version 1)
Quarter: 2024Q4

REPORT INFORMATION
  Report Type: Report from Study
  Country: ZA (occurrence: ZA)
  Receive Date: 20241030
  Receipt Date: 20241030
  Transmission Date: 20250115
  Serious: Yes (Other)
  Sender: ALEXION PHARMACEUTICALS
  Company Number: ZA-AstraZeneca-CH-00731842A

PATIENT
  Age: 62 Year

DRUGS (12)
  1. DAPAGLIFLOZIN [Suspect]
     Active Substance: DAPAGLIFLOZIN
     Indication: Diabetes mellitus
     Dosage: 10 MILLIGRAM
  2. DAPAGLIFLOZIN [Suspect]
     Active Substance: DAPAGLIFLOZIN
     Dosage: 10 MILLIGRAM
  3. DAPAGLIFLOZIN [Suspect]
     Active Substance: DAPAGLIFLOZIN
     Dosage: 10 MILLIGRAM
  4. DAPAGLIFLOZIN [Suspect]
     Active Substance: DAPAGLIFLOZIN
     Dosage: 10 MILLIGRAM
  5. Dynacaz [Concomitant]
     Indication: Diabetes mellitus
  6. Dynacaz [Concomitant]
  7. PERINDOPRIL [Concomitant]
     Active Substance: PERINDOPRIL
     Indication: Hypertension
  8. PERINDOPRIL [Concomitant]
     Active Substance: PERINDOPRIL
  9. VERAPAMIL HYDROCHLORIDE [Concomitant]
     Active Substance: VERAPAMIL HYDROCHLORIDE
     Indication: Hypertension
  10. VERAPAMIL HYDROCHLORIDE [Concomitant]
     Active Substance: VERAPAMIL HYDROCHLORIDE
  11. INDAPAMIDE [Concomitant]
     Active Substance: INDAPAMIDE
     Indication: Hypertension
  12. INDAPAMIDE [Concomitant]
     Active Substance: INDAPAMIDE

REACTIONS (1)
  - Pelvic fracture [Unknown]
